FAERS Safety Report 16029934 (Version 5)
Quarter: 2019Q3

REPORT INFORMATION
  Report Type: Report from Study
  Country: CA (occurrence: CA)
  Receive Date: 20190304
  Receipt Date: 20190705
  Transmission Date: 20191004
  Serious: Yes (Other)
  Sender: FDA-Public Use
  Company Number: CA-JNJFOC-20190227775

PATIENT
  Age: 28 Year
  Sex: Female
  Weight: 86.18 kg

DRUGS (1)
  1. STELARA [Suspect]
     Active Substance: USTEKINUMAB
     Indication: CROHN^S DISEASE
     Dosage: STRENGTH = 90 MG
     Route: 058
     Dates: start: 20170512

REACTIONS (6)
  - Pharyngitis streptococcal [Recovered/Resolved]
  - Frequent bowel movements [Recovering/Resolving]
  - Intestinal resection [Recovered/Resolved]
  - Eye infection [Recovered/Resolved]
  - Abdominal pain [Unknown]
  - Nasopharyngitis [Recovered/Resolved]

NARRATIVE: CASE EVENT DATE: 2019
